FAERS Safety Report 24100600 (Version 1)
Quarter: 2024Q3

REPORT INFORMATION
  Report Type: Spontaneous
  Country: CN (occurrence: CN)
  Receive Date: 20240717
  Receipt Date: 20240717
  Transmission Date: 20241016
  Serious: Yes (Life-Threatening, Hospitalization, Other)
  Sender: BRISTOL MYERS SQUIBB
  Company Number: CN-MLMSERVICE-20240704-PI122821-00255-1

PATIENT
  Age: 68 Year
  Sex: Male

DRUGS (4)
  1. PACLITAXEL [Suspect]
     Active Substance: PACLITAXEL
     Indication: Lung squamous cell carcinoma stage III
     Dates: start: 20210821
  2. SINTILIMAB [Suspect]
     Active Substance: SINTILIMAB
     Indication: Lung squamous cell carcinoma stage III
     Dates: start: 20210821
  3. SINTILIMAB [Suspect]
     Active Substance: SINTILIMAB
     Dosage: SECOND DOSE OF SINTILIMAB
     Dates: start: 20210925
  4. CARBOPLATIN [Suspect]
     Active Substance: CARBOPLATIN
     Indication: Lung squamous cell carcinoma stage III
     Dates: start: 20210821

REACTIONS (4)
  - Corynebacterium sepsis [Unknown]
  - Staphylococcal sepsis [Unknown]
  - Herpes sepsis [Unknown]
  - Neutropenia [Recovered/Resolved]

NARRATIVE: CASE EVENT DATE: 20210901
